FAERS Safety Report 14656831 (Version 1)
Quarter: 2018Q1

REPORT INFORMATION
  Report Type: Spontaneous
  Country: US (occurrence: US)
  Receive Date: 20180319
  Receipt Date: 20180319
  Transmission Date: 20180509
  Serious: No
  Sender: FDA-Public Use
  Company Number: US-SA-2017SA088377

PATIENT
  Age: 56 Year
  Sex: Female

DRUGS (1)
  1. NASACORT ALLERGY 24HR [Suspect]
     Active Substance: TRIAMCINOLONE ACETONIDE
     Indication: MULTIPLE ALLERGIES
     Dosage: DOSE: 1 SPRAY EACH NOSTRIL
     Route: 045
     Dates: start: 20170509, end: 20170509

REACTIONS (2)
  - Epistaxis [Recovered/Resolved]
  - Product use issue [Unknown]
